FAERS Safety Report 4760473-1 (Version None)
Quarter: 2005Q3

REPORT INFORMATION
  Report Type: 
  Country: None (occurrence: None)
  Receive Date: 20050902
  Receipt Date: 20040928
  Transmission Date: 20060218
  Serious: Yes (Death, Other)
  Sender: FDA-Public Use
  Company Number: PHEH2004US10492

PATIENT
  Sex: Female

DRUGS (2)
  1. ESTRADERM [Suspect]
     Indication: HORMONE REPLACEMENT THERAPY
     Route: 062
     Dates: end: 20010801
  2. VIVELLE [Suspect]
     Indication: HORMONE REPLACEMENT THERAPY
     Route: 062
     Dates: end: 20010801

REACTIONS (4)
  - BODY DYSMORPHIC DISORDER [None]
  - INJURY [None]
  - OVARIAN CANCER [None]
  - PAIN [None]
